FAERS Safety Report 18536231 (Version 13)
Quarter: 2023Q1

REPORT INFORMATION
  Report Type: Other
  Country: CA (occurrence: None)
  Receive Date: 20201124
  Receipt Date: 20230309
  Transmission Date: 20230417
  Serious: Yes (Other)
  Sender: FDA-Public Use
  Company Number: CA-ROCHE-2718688

PATIENT
  Sex: Female

DRUGS (8)
  1. OCREVUS [Suspect]
     Active Substance: OCRELIZUMAB
     Indication: Relapsing-remitting multiple sclerosis
     Dosage: 300 MG AT DAY 0 AND 14, THEN 600 MG EVERY 6 MONTH
     Route: 042
     Dates: start: 20200625
  2. TAMSULOSIN [Concomitant]
     Active Substance: TAMSULOSIN
     Dosage: STARTED AROUND JUNE OR JULY 2020
  3. BACLOFEN [Concomitant]
     Active Substance: BACLOFEN
  4. BISOPROLOL [Concomitant]
     Active Substance: BISOPROLOL
  5. AMLODIPINE [Concomitant]
     Active Substance: AMLODIPINE BESYLATE
  6. LEVOTHYROXINE [Concomitant]
     Active Substance: LEVOTHYROXINE
  7. ATORVASTATIN [Concomitant]
     Active Substance: ATORVASTATIN
  8. GABAPENTIN [Concomitant]
     Active Substance: GABAPENTIN

REACTIONS (10)
  - Meniscus injury [Unknown]
  - Oral herpes [Unknown]
  - Gait disturbance [Recovering/Resolving]
  - Back pain [Recovering/Resolving]
  - Arthralgia [Recovering/Resolving]
  - Pain [Recovering/Resolving]
  - Muscle spasms [Recovering/Resolving]
  - Trigger finger [Not Recovered/Not Resolved]
  - Alopecia [Unknown]
  - Granuloma annulare [Not Recovered/Not Resolved]
